FAERS Safety Report 6707715-0 (Version None)
Quarter: 2010Q2

REPORT INFORMATION
  Report Type: 
  Country: None (occurrence: None)
  Receive Date: 20100503
  Receipt Date: 20091117
  Transmission Date: 20101027
  Serious: No
  Sender: FDA-Public Use
  Company Number: US-ASTRAZENECA-2009SE27028

PATIENT
  Age: 69 Year
  Sex: Male
  Weight: 97.5 kg

DRUGS (7)
  1. NEXIUM [Suspect]
     Indication: GASTROOESOPHAGEAL REFLUX DISEASE
     Route: 048
     Dates: start: 20070101
  2. GLUCOSAMINE [Concomitant]
  3. ASACOL [Concomitant]
  4. CREON 5 [Concomitant]
  5. PREDNISONE [Concomitant]
  6. TRAMADOL HCL [Concomitant]
  7. RELAFEN [Concomitant]

REACTIONS (6)
  - ABDOMINAL DISTENSION [None]
  - COELIAC DISEASE [None]
  - COLITIS COLLAGENOUS [None]
  - DIARRHOEA [None]
  - ERUCTATION [None]
  - OESOPHAGITIS [None]
